FAERS Safety Report 6063808-5 (Version None)
Quarter: 2009Q1

REPORT INFORMATION
  Report Type: 
  Country: None (occurrence: None)
  Receive Date: 20090204
  Receipt Date: 20090127
  Transmission Date: 20090719
  Serious: Yes (Hospitalization)
  Sender: FDA-Public Use
  Company Number: JP-ELI_LILLY_AND_COMPANY-JP200812001712

PATIENT
  Sex: Female
  Weight: 40.5 kg

DRUGS (4)
  1. RALOXIFENE HYDROCHLORIDE [Suspect]
     Indication: OSTEOPOROSIS POSTMENOPAUSAL
     Dosage: 60 MG, DAILY (1/D)
     Route: 048
     Dates: start: 20080613, end: 20080929
  2. LOXONIN [Concomitant]
     Indication: OSTEOARTHRITIS
     Route: 065
  3. SUVENYL [Concomitant]
     Indication: OSTEOARTHRITIS
     Dosage: UNK, UNK
     Route: 065
  4. HYPEN [Concomitant]
     Indication: OSTEOARTHRITIS
     Dosage: UNK, UNK
     Route: 065
     Dates: start: 20080916, end: 20080919

REACTIONS (1)
  - LARGE INTESTINE CARCINOMA [None]
